FAERS Safety Report 4654788-5 (Version None)
Quarter: 2005Q2

REPORT INFORMATION
  Report Type: 
  Country: None (occurrence: None)
  Receive Date: 20050506
  Receipt Date: 20050426
  Transmission Date: 20051028
  Serious: Yes (Hospitalization)
  Sender: FDA-Public Use
  Company Number: US-ROCHE-403148

PATIENT
  Age: 16 Year
  Sex: Female
  Weight: 33.3 kg

DRUGS (6)
  1. KLONOPIN [Suspect]
     Indication: DRUG USE FOR UNKNOWN INDICATION
     Route: 048
     Dates: end: 20050409
  2. KEPPRA [Suspect]
     Indication: DRUG USE FOR UNKNOWN INDICATION
     Route: 048
     Dates: end: 20050409
  3. LASIX [Concomitant]
  4. PULMICORT [Concomitant]
  5. ATROVENT [Concomitant]
  6. FLONASE [Concomitant]

REACTIONS (1)
  - PANCREATITIS ACUTE [None]
